FAERS Safety Report 7043065-3 (Version None)
Quarter: 2010Q4

REPORT INFORMATION
  Report Type: 
  Country: None (occurrence: None)
  Receive Date: 20101013
  Receipt Date: 20101007
  Transmission Date: 20110411
  Serious: Yes (Hospitalization)
  Sender: FDA-Public Use
  Company Number: US-AMGEN-KDL443935

PATIENT
  Sex: Female
  Weight: 72.6 kg

DRUGS (8)
  1. ENBREL [Suspect]
     Indication: PSORIASIS
     Dates: start: 20100901
  2. HUMIRA [Suspect]
     Indication: PSORIASIS
     Dates: start: 20050101, end: 20100905
  3. OMEPRAZOLE [Concomitant]
  4. IRON [Concomitant]
  5. CALCIUM [Concomitant]
  6. PAROXETINE HCL [Concomitant]
  7. PREDNISONE [Concomitant]
  8. SPIRONOLACTONE [Concomitant]

REACTIONS (6)
  - ABDOMINAL DISTENSION [None]
  - ABDOMINAL PAIN [None]
  - COLITIS [None]
  - HEADACHE [None]
  - PAIN [None]
  - PYREXIA [None]
